FAERS Safety Report 5883057-0 (Version None)
Quarter: 2008Q3

REPORT INFORMATION
  Report Type: 
  Country: None (occurrence: None)
  Receive Date: 20080913
  Receipt Date: 20080827
  Transmission Date: 20090109
  Serious: No
  Sender: FDA-Public Use
  Company Number: US-ABBOTT-08P-163-0472861-00

PATIENT
  Sex: Female

DRUGS (1)
  1. HUMIRA [Suspect]
     Indication: RHEUMATOID ARTHRITIS

REACTIONS (6)
  - DIZZINESS [None]
  - EYE SWELLING [None]
  - FALL [None]
  - INSOMNIA [None]
  - MEMORY IMPAIRMENT [None]
  - NIGHTMARE [None]
